FAERS Safety Report 20535978 (Version 1)
Quarter: 2022Q1

REPORT INFORMATION
  Report Type: Spontaneous
  Country: JP (occurrence: JP)
  Receive Date: 20220302
  Receipt Date: 20220302
  Transmission Date: 20220423
  Serious: Yes (Other)
  Sender: FDA-Public Use
  Company Number: JP-BRISTOL-MYERS SQUIBB COMPANY-BMS-2022-028478

PATIENT
  Age: 71 Year
  Sex: Male

DRUGS (1)
  1. SPRYCEL [Suspect]
     Active Substance: DASATINIB
     Indication: Chronic myeloid leukaemia
     Dosage: UNK
     Route: 048

REACTIONS (4)
  - Organising pneumonia [Recovering/Resolving]
  - Alveolar lung disease [Recovering/Resolving]
  - Pleural effusion [Recovering/Resolving]
  - Alveolar proteinosis [Recovering/Resolving]
